FAERS Safety Report 4838484-7 (Version None)
Quarter: 2005Q4

REPORT INFORMATION
  Report Type: 
  Country: None (occurrence: None)
  Receive Date: 20051123
  Receipt Date: 20051123
  Transmission Date: 20060501
  Serious: Yes (Hospitalization)
  Sender: FDA-Public Use
  Company Number: None

PATIENT
  Age: 23 Year
  Sex: Male

DRUGS (3)
  1. THORAZINE [Suspect]
     Indication: ANXIETY
     Dosage: 100MG X 1 DOSE
  2. IBUPROFEN [Concomitant]
  3. DIPHENHYDRAMINE HCL [Concomitant]

REACTIONS (1)
  - PRIAPISM [None]
